FAERS Safety Report 10186111 (Version 3)
Quarter: 2014Q4

REPORT INFORMATION
  Report Type: Spontaneous
  Country: US (occurrence: US)
  Receive Date: 20140521
  Receipt Date: 20141201
  Transmission Date: 20150528
  Serious: Yes (Hospitalization)
  Sender: FDA-Public Use
  Company Number: US-BAYER-2014-075629

PATIENT
  Age: 23 Year
  Sex: Female
  Weight: 66 kg

DRUGS (10)
  1. RELPAX [Concomitant]
     Active Substance: ELETRIPTAN HYDROBROMIDE
     Dosage: UNK
     Dates: start: 2000, end: 2004
  2. PRILOSEC [Concomitant]
     Active Substance: OMEPRAZOLE MAGNESIUM
  3. ANTIVERT [Concomitant]
     Active Substance: MECLIZINE HYDROCHLORIDE
  4. MIRENA [Suspect]
     Active Substance: LEVONORGESTREL
     Indication: CONTRACEPTION
     Dosage: 20 MCG/24HR, CONT
     Route: 015
     Dates: start: 20020522, end: 20040813
  5. AVONEX [Concomitant]
     Active Substance: INTERFERON BETA-1A
     Dosage: UNK
  6. PREMARIN [Concomitant]
     Active Substance: ESTROGENS, CONJUGATED
     Indication: MENSTRUATION IRREGULAR
     Dosage: UNK
     Dates: start: 20040520, end: 20040615
  7. MOBIC [Concomitant]
     Active Substance: MELOXICAM
  8. CELEBREX [Concomitant]
     Active Substance: CELECOXIB
  9. AMERGE [Concomitant]
     Active Substance: NARATRIPTAN HYDROCHLORIDE
     Dosage: UNK
  10. EXCEDRIN [Concomitant]
     Active Substance: ACETAMINOPHEN\ASPIRIN\CAFFEINE

REACTIONS (9)
  - Abdominal pain lower [None]
  - Dysmenorrhoea [None]
  - Dizziness [None]
  - Uterine perforation [None]
  - Pain [None]
  - Uterine infection [None]
  - Complication of device removal [None]
  - Injury [None]
  - Emotional distress [None]

NARRATIVE: CASE EVENT DATE: 200208
